FAERS Safety Report 4381622-3 (Version None)
Quarter: 2004Q2

REPORT INFORMATION
  Report Type: 
  Country: None (occurrence: None)
  Receive Date: 20040615
  Receipt Date: 20040528
  Transmission Date: 20050107
  Serious: Yes (Death)
  Sender: FDA-Public Use
  Company Number: B0334173A

PATIENT
  Age: 63 Year
  Sex: Female

DRUGS (7)
  1. MYLERAN [Suspect]
     Dosage: 6 MG/KG/PER DAY
  2. THIOTEPA [Suspect]
     Dosage: 250 MG/M2/DAY
  3. CYCLOPHOSPHAMIDE [Suspect]
     Dosage: 60 MG/KG/PER DAY
  4. CLONAZEPAM [Concomitant]
  5. CYTARABINE [Concomitant]
  6. ETOPOSIDE [Concomitant]
  7. GRANULOCYTE COL.STIM.FACT [Concomitant]

REACTIONS (4)
  - ENCEPHALOPATHY [None]
  - HAEMORRHAGE [None]
  - NEUTROPENIA [None]
  - THROMBOCYTOPENIA [None]
